FAERS Safety Report 9413329 (Version 1)
Quarter: 2013Q3

REPORT INFORMATION
  Report Type: Spontaneous
  Country: HR (occurrence: HR)
  Receive Date: 20130722
  Receipt Date: 20130722
  Transmission Date: 20140515
  Serious: Yes (Other)
  Sender: FDA-Public Use
  Company Number: HR-PFIZER INC-2013212075

PATIENT
  Age: 63 Year
  Sex: Female

DRUGS (4)
  1. TRITACE [Suspect]
     Indication: HYPERTENSION
     Dosage: 2.5 MG, DAILY
     Route: 048
  2. SIOFOR [Interacting]
     Indication: DIABETES MELLITUS
     Dosage: 850 MG, 3X/DAY
  3. ACIPAN [Concomitant]
     Dosage: UNK
  4. DORETA [Concomitant]

REACTIONS (10)
  - Oedema [Unknown]
  - Hypoglycaemia [Unknown]
  - Headache [Unknown]
  - Dizziness [Unknown]
  - Nausea [Unknown]
  - Muscular weakness [Unknown]
  - Muscle spasms [Unknown]
  - Tremor [Unknown]
  - Tachycardia [Unknown]
  - Drug interaction [Unknown]
